FAERS Safety Report 12916647 (Version 2)
Quarter: 2024Q2

REPORT INFORMATION
  Report Type: Spontaneous
  Country: JP (occurrence: JP)
  Receive Date: 20161107
  Receipt Date: 20240401
  Transmission Date: 20240715
  Serious: Yes (Life-Threatening, Other)
  Sender: FDA-Public Use
  Company Number: JP-ACCORD-038701

PATIENT
  Age: 81 Year
  Sex: Female

DRUGS (3)
  1. DOCETAXEL [Suspect]
     Active Substance: DOCETAXEL\DOCETAXEL ANHYDROUS
     Indication: Metastases to peritoneum
     Dosage: MONTHLY DOCETAXEL THERAPY (60 MG/M2, ONCE EVERY4 WEEKS)THEN TRANSFER TO ONCE WEEKLY 25 MG/M2 THERAPY
  2. GRANULOCYTE COLONY-STIMULATING FACTOR NOS [Suspect]
     Active Substance: GRANULOCYTE COLONY-STIMULATING FACTOR NOS
     Indication: Neutropenia
  3. DOCETAXEL [Suspect]
     Active Substance: DOCETAXEL\DOCETAXEL ANHYDROUS
     Indication: Ileus paralytic
     Dosage: MONTHLY DOCETAXEL THERAPY (60 MG/M2, ONCE EVERY4 WEEKS)THEN TRANSFER TO ONCE WEEKLY 25 MG/M2 THERAPY

REACTIONS (2)
  - Drug resistance [Unknown]
  - Neutropenia [Unknown]
